FAERS Safety Report 20368748 (Version 1)
Quarter: 2022Q1

REPORT INFORMATION
  Report Type: Spontaneous
  Country: DE (occurrence: DE)
  Receive Date: 20220124
  Receipt Date: 20220124
  Transmission Date: 20220423
  Serious: Yes (Hospitalization)
  Sender: FDA-Public Use
  Company Number: None

PATIENT
  Age: 80 Year
  Sex: Female

DRUGS (6)
  1. ARIPIPRAZOLE [Interacting]
     Active Substance: ARIPIPRAZOLE
     Indication: Product used for unknown indication
     Dosage: 20 MG, 1-0-0-0, TABLETS
  2. OLANZAPINE [Interacting]
     Active Substance: OLANZAPINE
     Indication: Product used for unknown indication
     Dosage: OLANZAPINE 1A PHARMA STRENGTH: 5MG, 5 MG, 1-0-0-0, TABLETS
  3. PIPAMPERONE HYDROCHLORIDE [Interacting]
     Active Substance: PIPAMPERONE HYDROCHLORIDE
     Indication: Product used for unknown indication
     Dosage: STRENGTH: 40 MG, 40MG, 0.5-0-0-1, TABLETS
  4. AMLODIPINE [Concomitant]
     Active Substance: AMLODIPINE BESYLATE
     Dosage: STRENGTH: 5MG N, 5 MG, 0.5-0-0.5-0, TABLETS
  5. LEVOTHYROXINE [Concomitant]
     Active Substance: LEVOTHYROXINE
     Dosage: STRENGTH: 100 MICROGRAMS/ML?100 MICRO GRAM, 1-0-0-0, TABLETS
  6. TORSEMIDE [Concomitant]
     Active Substance: TORSEMIDE
     Dosage: STRENGTH: 5MG, 5 MG, 0.5-0-0-0, TABLETS

REACTIONS (5)
  - Angina pectoris [Unknown]
  - Medication error [Unknown]
  - Depressed level of consciousness [Unknown]
  - Syncope [Unknown]
  - Drug interaction [Unknown]
